FAERS Safety Report 7009682-1 (Version None)
Quarter: 2010Q3

REPORT INFORMATION
  Report Type: 
  Country: None (occurrence: None)
  Receive Date: 20100923
  Receipt Date: 20100914
  Transmission Date: 20110219
  Serious: Yes (Other)
  Sender: FDA-Public Use
  Company Number: VE-PFIZER INC-2010109658

PATIENT
  Age: 39 Year
  Sex: Female

DRUGS (2)
  1. TAFIL [Suspect]
     Indication: SLEEP DISORDER
     Dosage: 1.5 MG, 2X/DAY
     Route: 048
     Dates: start: 20040101, end: 20090501
  2. TAFIL [Suspect]
     Indication: PANIC DISORDER

REACTIONS (12)
  - DEPRESSION [None]
  - DRUG WITHDRAWAL SYNDROME [None]
  - FEELING ABNORMAL [None]
  - HAEMOGLOBIN DECREASED [None]
  - HEPATIC CIRRHOSIS [None]
  - IMPAIRED DRIVING ABILITY [None]
  - INSOMNIA [None]
  - IRRITABILITY [None]
  - LOSS OF CONSCIOUSNESS [None]
  - OXYGEN CONSUMPTION DECREASED [None]
  - TACHYCARDIA [None]
  - WEIGHT DECREASED [None]
